FAERS Safety Report 18312706 (Version 1)
Quarter: 2020Q3

REPORT INFORMATION
  Report Type: Spontaneous
  Country: US (occurrence: US)
  Receive Date: 20200925
  Receipt Date: 20200925
  Transmission Date: 20201103
  Serious: No
  Sender: FDA-Public Use
  Company Number: None

PATIENT
  Sex: Female
  Weight: 68.85 kg

DRUGS (7)
  1. VITAMIN B12 [Concomitant]
     Active Substance: CYANOCOBALAMIN
  2. VITAMIN C [Concomitant]
     Active Substance: ASCORBIC ACID
  3. MULTIPLE MINERAL [Concomitant]
  4. WESTHROID [Suspect]
     Active Substance: THYROGLOBULIN
     Indication: HYPOTHYROIDISM
     Dates: start: 20200915, end: 20200922
  5. MAGNESIUM [Concomitant]
     Active Substance: MAGNESIUM
  6. LISINOPRIL. [Concomitant]
     Active Substance: LISINOPRIL
  7. MULTIPLE B [Concomitant]

REACTIONS (8)
  - Hyperhidrosis [None]
  - Condition aggravated [None]
  - Palpitations [None]
  - Headache [None]
  - Hypertension [None]
  - Product physical issue [None]
  - Nervousness [None]
  - Blood thyroid stimulating hormone increased [None]
